FAERS Safety Report 23828436 (Version 2)
Quarter: 2024Q2

REPORT INFORMATION
  Report Type: Spontaneous
  Country: US (occurrence: US)
  Receive Date: 20240508
  Receipt Date: 20240606
  Transmission Date: 20240715
  Serious: Yes (Other)
  Sender: FDA-Public Use
  Company Number: US-BAUSCH-BL-2024-006247

PATIENT
  Age: 50 Year
  Sex: Female

DRUGS (1)
  1. NASALCROM [Suspect]
     Active Substance: CROMOLYN SODIUM
     Indication: Mast cell activation syndrome
     Dosage: USED FOR A WEEK
     Route: 045

REACTIONS (8)
  - Intracranial pressure increased [Recovered/Resolved]
  - Throat irritation [Recovered/Resolved]
  - Migraine [Recovered/Resolved]
  - Nasal discomfort [Recovered/Resolved]
  - Asthenopia [Recovered/Resolved]
  - Therapeutic product effect decreased [Unknown]
  - Product taste abnormal [Unknown]
  - Product odour abnormal [Unknown]
